FAERS Safety Report 8607017-1 (Version None)
Quarter: 2012Q3

REPORT INFORMATION
  Report Type: 
  Country: None (occurrence: None)
  Receive Date: 20120820
  Receipt Date: 20120814
  Transmission Date: 20120928
  Serious: Yes (Other)
  Sender: FDA-Public Use
  Company Number: CA-ROCHE-GNE287071

PATIENT
  Sex: Male
  Weight: 92 kg

DRUGS (9)
  1. OMALIZUMAB [Suspect]
     Route: 058
     Dates: start: 20110630
  2. PREDNISONE [Concomitant]
     Indication: PRODUCT USED FOR UNKNOWN INDICATION
  3. SINGULAIR [Concomitant]
  4. OMALIZUMAB [Suspect]
     Dosage: 375 MG, Q2W
     Route: 058
     Dates: start: 20090527
  5. ADVAIR [Concomitant]
     Indication: PRODUCT USED FOR UNKNOWN INDICATION
  6. SYMBICORT [Concomitant]
  7. OMALIZUMAB [Suspect]
     Indication: ASTHMA
     Dosage: 375 MG, Q2W
     Route: 058
     Dates: start: 20061117
  8. VENTOLIN [Concomitant]
  9. OMALIZUMAB [Suspect]
     Dosage: 375 MG, Q2W
     Route: 058
     Dates: start: 20090707

REACTIONS (14)
  - WHEEZING [None]
  - MALAISE [None]
  - BLOOD PRESSURE INCREASED [None]
  - RHINORRHOEA [None]
  - PNEUMOTHORAX [None]
  - NASAL CONGESTION [None]
  - HYPOVENTILATION [None]
  - DYSPNOEA [None]
  - NASOPHARYNGITIS [None]
  - ASTHMA [None]
  - HYPERSENSITIVITY [None]
  - INFLUENZA [None]
  - CHEST PAIN [None]
  - SINUS CONGESTION [None]
